FAERS Safety Report 8916662 (Version 1)
Quarter: 2012Q4

REPORT INFORMATION
  Report Type: 
  Country: SE (occurrence: SE)
  Receive Date: 20121120
  Receipt Date: 20121120
  Transmission Date: 20130627
  Serious: Yes (Hospitalization)
  Sender: FDA-Public Use
  Company Number: SE-PFIZER INC-2012287360

PATIENT
  Age: 74 Year
  Sex: Female
  Weight: 85 kg

DRUGS (11)
  1. GENOTROPIN [Suspect]
     Dosage: 0.3 mg, 1x/day7 injections/week
     Route: 058
     Dates: start: 20010904
  2. FURIX [Concomitant]
     Indication: ESSENTIAL HYPERTENSION
     Dosage: UNK
     Dates: start: 19850701
  3. SELOKEN [Concomitant]
     Indication: ESSENTIAL HYPERTENSION
     Dosage: UNK
     Dates: start: 19950315
  4. LEVOTHYROXINE [Concomitant]
     Indication: THYROID DISORDER
     Dosage: UNK
     Dates: start: 19970215
  5. LEVOTHYROXINE [Concomitant]
     Indication: PRIMARY HYPOTHYROIDISM
  6. LINATIL [Concomitant]
     Indication: ESSENTIAL HYPERTENSION, UNSPECIFIED
     Dosage: UNK
     Dates: start: 20020701
  7. HYDROCORTISONE [Concomitant]
     Indication: ACTH DECREASED
     Dosage: UNK
     Dates: start: 20030602
  8. SPIRONOLACTONE [Concomitant]
     Indication: HYPERTONIA
     Dosage: UNK
     Dates: start: 20030615
  9. FEM-MONO [Concomitant]
     Indication: ANGINA PECTORIS
     Dosage: UNK
     Dates: start: 20031001
  10. ZOLOFT [Concomitant]
     Indication: DEPRESSION
     Dosage: UNK
     Dates: start: 20031001
  11. ZOCORD [Concomitant]
     Indication: HYPERLIPIDAEMIA
     Dosage: UNK
     Dates: start: 19960815

REACTIONS (1)
  - Infection [Unknown]
